FAERS Safety Report 21183357 (Version 1)
Quarter: 2022Q3

REPORT INFORMATION
  Report Type: Spontaneous
  Country: US (occurrence: None)
  Receive Date: 20220808
  Receipt Date: 20220808
  Transmission Date: 20221027
  Serious: Yes (Hospitalization, Other)
  Sender: FDA-Public Use
  Company Number: US-MLMSERVICE-20220719-3675217-1

PATIENT
  Age: 40 Year
  Sex: Male

DRUGS (2)
  1. AZATHIOPRINE [Suspect]
     Active Substance: AZATHIOPRINE
     Indication: Rheumatoid arthritis
     Route: 065
  2. AZATHIOPRINE [Suspect]
     Active Substance: AZATHIOPRINE
     Route: 065

REACTIONS (5)
  - Aphthous ulcer [Recovering/Resolving]
  - Febrile neutropenia [Recovering/Resolving]
  - Aplastic anaemia [Recovering/Resolving]
  - Myelosuppression [Recovering/Resolving]
  - Toxicity to various agents [Recovering/Resolving]
